FAERS Safety Report 5065539-7 (Version None)
Quarter: 2006Q3

REPORT INFORMATION
  Report Type: 
  Country: None (occurrence: None)
  Receive Date: 20060731
  Receipt Date: 20060718
  Transmission Date: 20061208
  Serious: Yes (Other)
  Sender: FDA-Public Use
  Company Number: JP-JPN-A200602026

PATIENT
  Age: 31 Year
  Sex: Female

DRUGS (6)
  1. PAXIL [Suspect]
     Indication: DEPRESSION
     Dosage: 30MG PER DAY
     Route: 048
  2. DEPAS [Concomitant]
     Indication: DEPRESSION
     Route: 048
  3. EVAMYL [Concomitant]
     Indication: DEPRESSION
     Route: 048
  4. INSULIN [Concomitant]
     Indication: GESTATIONAL DIABETES
     Route: 058
  5. INSULIN [Concomitant]
     Dosage: 14IU PER DAY
     Route: 058
  6. GENERAL ANAESTHESIA [Concomitant]

REACTIONS (3)
  - DRUG EXPOSURE DURING PREGNANCY [None]
  - PREMATURE RUPTURE OF MEMBRANES [None]
  - THREATENED LABOUR [None]
